FAERS Safety Report 21096357 (Version 1)
Quarter: 2022Q3

REPORT INFORMATION
  Report Type: Spontaneous
  Country: US (occurrence: None)
  Receive Date: 20220718
  Receipt Date: 20220718
  Transmission Date: 20221027
  Serious: Yes (Other)
  Sender: FDA-Public Use
  Company Number: None

PATIENT
  Age: 83 Year
  Sex: Female
  Weight: 65 kg

DRUGS (1)
  1. BOTULINUM TOXIN TYPE A [Suspect]
     Active Substance: BOTULINUM TOXIN TYPE A
     Indication: Torticollis
     Dosage: OTHER FREQUENCY : ONCE;?
     Route: 030
     Dates: start: 20220324, end: 20220324

REACTIONS (6)
  - Diplopia [None]
  - Visual impairment [None]
  - Gait disturbance [None]
  - Confusional state [None]
  - Magnetic resonance imaging head abnormal [None]
  - Electroencephalogram abnormal [None]

NARRATIVE: CASE EVENT DATE: 20220718
